FAERS Safety Report 9342085 (Version 1)
Quarter: 2013Q2

REPORT INFORMATION
  Report Type: Spontaneous
  Country: GB (occurrence: None)
  Receive Date: 20130606
  Receipt Date: 20130606
  Transmission Date: 20140414
  Serious: Yes (Other)
  Sender: FDA-Public Use
  Company Number: GER/UKI/13/0029825

PATIENT
  Age: 41 Year
  Sex: Male

DRUGS (1)
  1. RISPERIDONE (RISPERIDONE) [Suspect]
     Dosage: 2 IN 1 D
     Route: 048

REACTIONS (4)
  - Accidental overdose [None]
  - Extrapyramidal disorder [None]
  - Mobility decreased [None]
  - Deep vein thrombosis [None]
